FAERS Safety Report 21244455 (Version 5)
Quarter: 2022Q3

REPORT INFORMATION
  Report Type: Spontaneous
  Country: AU (occurrence: None)
  Receive Date: 20220823
  Receipt Date: 20220909
  Transmission Date: 20221026
  Serious: Yes (Other)
  Sender: FDA-Public Use
  Company Number: AU-ROCHE-3163904

PATIENT
  Sex: Male
  Weight: 68 kg

DRUGS (21)
  1. RITUXIMAB [Suspect]
     Active Substance: RITUXIMAB
     Indication: B-cell lymphoma recurrent
     Dosage: R-HYPERCVAD
     Route: 042
     Dates: start: 20210622, end: 20211001
  2. RITUXIMAB [Suspect]
     Active Substance: RITUXIMAB
     Indication: Diffuse large B-cell lymphoma
     Dosage: R-GEM-VINORELBINE
     Route: 042
     Dates: start: 20220118, end: 20220215
  3. PEGFILGRASTIM [Suspect]
     Active Substance: PEGFILGRASTIM
     Indication: B-cell lymphoma recurrent
     Route: 065
  4. DEXAMETHASONE [Suspect]
     Active Substance: DEXAMETHASONE
     Indication: B-cell lymphoma recurrent
     Dosage: R-HYPERCVAD
     Route: 042
     Dates: start: 20210622, end: 20211001
  5. DEXAMETHASONE [Suspect]
     Active Substance: DEXAMETHASONE
     Indication: Diffuse large B-cell lymphoma
  6. CYCLOPHOSPHAMIDE [Suspect]
     Active Substance: CYCLOPHOSPHAMIDE
     Indication: B-cell lymphoma recurrent
     Dosage: R-HYPERCVAD
     Route: 042
     Dates: start: 20210622, end: 20211001
  7. CYCLOPHOSPHAMIDE [Suspect]
     Active Substance: CYCLOPHOSPHAMIDE
     Indication: Diffuse large B-cell lymphoma
  8. VINCRISTINE [Suspect]
     Active Substance: VINCRISTINE
     Indication: B-cell lymphoma recurrent
     Dosage: R-HYPERCVAD
     Route: 042
     Dates: start: 20210622, end: 20211001
  9. VINCRISTINE [Suspect]
     Active Substance: VINCRISTINE
     Indication: Diffuse large B-cell lymphoma
  10. ADRIAMYCIN [Suspect]
     Active Substance: DOXORUBICIN HYDROCHLORIDE
     Indication: B-cell lymphoma recurrent
     Dosage: R-HYPERCVAD
     Route: 042
     Dates: start: 20210622, end: 20211001
  11. ADRIAMYCIN [Suspect]
     Active Substance: DOXORUBICIN HYDROCHLORIDE
     Indication: Diffuse large B-cell lymphoma
  12. GEMCITABINE [Suspect]
     Active Substance: GEMCITABINE
     Indication: B-cell lymphoma recurrent
     Dosage: R-GEM-VINORELBINE
     Route: 042
     Dates: start: 20220118, end: 20220215
  13. GEMCITABINE [Suspect]
     Active Substance: GEMCITABINE
     Indication: Diffuse large B-cell lymphoma
  14. VINORELBINE [Suspect]
     Active Substance: VINORELBINE TARTRATE
     Indication: B-cell lymphoma recurrent
     Route: 042
     Dates: start: 20220118, end: 20220215
  15. VINORELBINE [Suspect]
     Active Substance: VINORELBINE TARTRATE
     Indication: Diffuse large B-cell lymphoma
  16. MESNA [Suspect]
     Active Substance: MESNA
     Indication: B-cell lymphoma recurrent
     Route: 065
  17. DOXORUBICIN [Suspect]
     Active Substance: DOXORUBICIN
     Indication: B-cell lymphoma recurrent
     Route: 065
  18. METHOTREXATE [Suspect]
     Active Substance: METHOTREXATE
     Indication: B-cell lymphoma recurrent
     Route: 065
  19. LEUCOVORIN CALCIUM [Suspect]
     Active Substance: LEUCOVORIN CALCIUM
     Indication: B-cell lymphoma recurrent
     Route: 065
  20. CYTARABINE [Suspect]
     Active Substance: CYTARABINE
     Indication: B-cell lymphoma recurrent
     Route: 065
  21. PREDNISONE [Concomitant]
     Active Substance: PREDNISONE

REACTIONS (5)
  - B-cell lymphoma recurrent [Unknown]
  - Disease progression [Unknown]
  - Neurotoxicity [Unknown]
  - Hepatitis B core antibody positive [Unknown]
  - Liver function test increased [Unknown]
